FAERS Safety Report 13540687 (Version 1)
Quarter: 2017Q2

REPORT INFORMATION
  Report Type: Spontaneous
  Country: SE (occurrence: SE)
  Receive Date: 20170512
  Receipt Date: 20170512
  Transmission Date: 20170830
  Serious: Yes (Disabling)
  Sender: FDA-Public Use
  Company Number: SE-SEPTODONT-201704005

PATIENT
  Age: 62 Year
  Sex: Female

DRUGS (5)
  1. LIPITOR 10 MG FILMDRAGERAD TABLETT [Concomitant]
  2. TROMBYL 75 MG TABLETT [Suspect]
     Active Substance: ASPIRIN
  3. SODIUM HYPOCHLORITE [Concomitant]
     Active Substance: SODIUM HYPOCHLORITE
     Dates: start: 20170224, end: 20170224
  4. CITANEST DENTAL OCTAPRESSIN 30 M G/ML + 0 INJEKTIONSV [Suspect]
     Active Substance: FELYPRESSIN\PRILOCAINE
     Indication: LOCAL ANAESTHESIA
     Route: 004
     Dates: start: 20170224, end: 20170224
  5. SEPTOCAINE [Suspect]
     Active Substance: ARTICAINE HYDROCHLORIDE\EPINEPHRINE BITARTRATE
     Indication: LOCAL ANAESTHESIA
     Dosage: 1.7 OR 1.8ML GIVEN
     Route: 004
     Dates: start: 20170224, end: 20170224

REACTIONS (3)
  - Injection site swelling [Recovered/Resolved]
  - Paraesthesia oral [Not Recovered/Not Resolved]
  - Delayed recovery from anaesthesia [Recovered/Resolved]

NARRATIVE: CASE EVENT DATE: 20170224
